FAERS Safety Report 4385788-0 (Version None)
Quarter: 2004Q2

REPORT INFORMATION
  Report Type: 
  Country: None (occurrence: None)
  Receive Date: 20040623
  Receipt Date: 20040608
  Transmission Date: 20050107
  Serious: Yes (Death)
  Sender: FDA-Public Use
  Company Number: 2004GB01047

PATIENT
  Age: 24 Month
  Sex: Male

DRUGS (12)
  1. LOSEC [Suspect]
     Indication: GASTROOESOPHAGEAL REFLUX DISEASE
     Dosage: 2.2 MG DAILY
     Dates: start: 20030501
  2. LOSEC [Suspect]
     Indication: GASTROOESOPHAGEAL REFLUX DISEASE
     Dosage: 8 ML DAILY
  3. SODIUM CHLORIDE INJ [Concomitant]
  4. FOLIC ACID [Concomitant]
  5. SYNTRON [Concomitant]
  6. LACTULOSE [Concomitant]
  7. DOMPERIDONE [Concomitant]
  8. ALFACALCIDOL [Concomitant]
  9. DALIVIT [Concomitant]
  10. TRIMETHOPRIM [Concomitant]
  11. SODIUM BICARBONATE [Concomitant]
  12. EPOGEN [Concomitant]

REACTIONS (13)
  - BRAIN OEDEMA [None]
  - CHEST X-RAY ABNORMAL [None]
  - CIRCULATORY COLLAPSE [None]
  - COMA [None]
  - CONVULSION [None]
  - FOREIGN BODY ASPIRATION [None]
  - HYPERNATRAEMIA [None]
  - INFECTION [None]
  - POOR PERIPHERAL CIRCULATION [None]
  - RESPIRATORY DISORDER [None]
  - RESPIRATORY RATE INCREASED [None]
  - SALT INTOXICATION [None]
  - VOMITING [None]
